FAERS Safety Report 5840698-4 (Version None)
Quarter: 2008Q3

REPORT INFORMATION
  Report Type: 
  Country: None (occurrence: None)
  Receive Date: 20080811
  Receipt Date: 20080730
  Transmission Date: 20090109
  Serious: Yes (Death)
  Sender: FDA-Public Use
  Company Number: JP-PFIZER INC-2008063958

PATIENT
  Sex: Male
  Weight: 65 kg

DRUGS (5)
  1. ZYVOX [Suspect]
     Indication: STAPHYLOCOCCAL SEPSIS
     Route: 042
     Dates: start: 20080728, end: 20080728
  2. UNASYN [Suspect]
     Route: 042
  3. PAXIL [Concomitant]
     Route: 048
     Dates: start: 20080604, end: 20080728
  4. ZOPICLONE [Concomitant]
     Route: 048
     Dates: start: 20080604, end: 20080728
  5. SEROQUEL [Concomitant]
     Route: 048
     Dates: start: 20080604, end: 20080728

REACTIONS (2)
  - METABOLIC ACIDOSIS [None]
  - RASH [None]
